FAERS Safety Report 8343879-3 (Version None)
Quarter: 2012Q2

REPORT INFORMATION
  Report Type: 
  Country: None (occurrence: None)
  Receive Date: 20120508
  Receipt Date: 20120430
  Transmission Date: 20120825
  Serious: Yes (Other)
  Sender: FDA-Public Use
  Company Number: US-US-EMD SERONO, INC.-7129682

PATIENT
  Sex: Female
  Weight: 67 kg

DRUGS (20)
  1. REBIF [Suspect]
     Route: 058
     Dates: start: 20120101
  2. AMPYRA [Concomitant]
     Indication: MULTIPLE SCLEROSIS
  3. HYDROCHLOROTHIAZIDE [Concomitant]
     Indication: OEDEMA PERIPHERAL
  4. BUPROPION HCL [Concomitant]
     Indication: DEPRESSION
  5. CRESTOR [Concomitant]
     Indication: BLOOD CHOLESTEROL INCREASED
  6. ASMANEX TWISTHALER [Concomitant]
     Indication: ASTHMA
  7. NASONEX [Concomitant]
     Indication: SEASONAL ALLERGY
  8. BACLOFEN [Concomitant]
     Indication: MUSCLE SPASTICITY
  9. EVOXAC [Concomitant]
     Indication: SALIVARY HYPERSECRETION
  10. MIRAPEX [Concomitant]
     Indication: RESTLESS LEGS SYNDROME
  11. AMPYRA [Concomitant]
     Indication: GAIT DISTURBANCE
  12. STOOL SOFTENER [Concomitant]
     Indication: FUNCTIONAL GASTROINTESTINAL DISORDER
  13. CELEBREX [Concomitant]
     Indication: MULTIPLE SCLEROSIS
  14. SINGULAIR [Concomitant]
     Indication: ASTHMA
  15. STIMULANT LAXATIVE [Concomitant]
     Indication: FUNCTIONAL GASTROINTESTINAL DISORDER
  16. FOLIC ACID [Concomitant]
     Indication: PRODUCT USED FOR UNKNOWN INDICATION
  17. REBIF [Suspect]
     Indication: MULTIPLE SCLEROSIS
     Route: 058
     Dates: start: 20100818, end: 20110901
  18. EFFEXOR XR [Concomitant]
     Indication: DEPRESSION
  19. PROAIR HFA [Concomitant]
     Indication: ASTHMA
  20. TIZANIDINE [Concomitant]
     Indication: MUSCLE SPASTICITY

REACTIONS (2)
  - METASTASES TO LYMPH NODES [None]
  - TONGUE NEOPLASM MALIGNANT STAGE UNSPECIFIED [None]
